FAERS Safety Report 6374762-0 (Version None)
Quarter: 2009Q3

REPORT INFORMATION
  Report Type: 
  Country: None (occurrence: None)
  Receive Date: 20090924
  Receipt Date: 20090915
  Transmission Date: 20100115
  Serious: Yes (Hospitalization)
  Sender: FDA-Public Use
  Company Number: PHHY2009AU39788

PATIENT
  Sex: Male

DRUGS (3)
  1. CLOZARIL [Suspect]
     Dosage: UNK
     Route: 048
     Dates: start: 20011128
  2. CLOZARIL [Suspect]
     Dosage: 600 MG/DAY
     Route: 048
  3. CLOZARIL [Suspect]
     Dosage: 550 MG/DAY
     Route: 048

REACTIONS (1)
  - MENTAL DISORDER [None]
